FAERS Safety Report 15694878 (Version 2)
Quarter: 2018Q4

REPORT INFORMATION
  Report Type: Spontaneous
  Country: CH (occurrence: CH)
  Receive Date: 20181206
  Receipt Date: 20181213
  Transmission Date: 20190205
  Serious: Yes (Hospitalization, Disabling, Other)
  Sender: FDA-Public Use
  Company Number: CH-TEVA-2018-CH-983862

PATIENT
  Sex: Female

DRUGS (1)
  1. ATORVASTATIN-MEPHA 20 MG [Suspect]
     Active Substance: ATORVASTATIN
     Route: 065
     Dates: start: 2012, end: 2016

REACTIONS (6)
  - Walking aid user [Not Recovered/Not Resolved]
  - Myopathy [Not Recovered/Not Resolved]
  - Blood creatine phosphokinase increased [Not Recovered/Not Resolved]
  - Myalgia [Not Recovered/Not Resolved]
  - Gait disturbance [Unknown]
  - Muscular weakness [Unknown]

NARRATIVE: CASE EVENT DATE: 2015
